FAERS Safety Report 14315050 (Version 3)
Quarter: 2018Q1

REPORT INFORMATION
  Report Type: Spontaneous
  Country: NL (occurrence: NL)
  Receive Date: 20171221
  Receipt Date: 20180112
  Transmission Date: 20180509
  Serious: Yes (Death, Hospitalization)
  Sender: FDA-Public Use
  Company Number: NL-TEVA-2017-NL-837595

PATIENT
  Sex: Female

DRUGS (1)
  1. OXYCODONE [Suspect]
     Active Substance: OXYCODONE
     Indication: CONTUSION
     Dosage: UNKNOWN DOSE
     Route: 065

REACTIONS (3)
  - Constipation [Unknown]
  - Product use in unapproved indication [Unknown]
  - Death [Fatal]
